FAERS Safety Report 8829327 (Version 1)
Quarter: 2012Q4

REPORT INFORMATION
  Report Type: 
  Country: US (occurrence: US)
  Receive Date: 20121008
  Receipt Date: 20121008
  Transmission Date: 20130627
  Serious: Yes (Hospitalization)
  Sender: FDA-Public Use
  Company Number: US-GILEAD-2012-0060190

PATIENT
  Age: 53 Year
  Sex: Female

DRUGS (2)
  1. LETAIRIS [Suspect]
     Indication: PRODUCT USED FOR UNKNOWN INDICATION
     Dosage: 5 mg, QD
     Route: 048
     Dates: start: 20100709
  2. AVELOX [Suspect]

REACTIONS (8)
  - Anaphylactic reaction [Unknown]
  - Sleep disorder [Unknown]
  - Malaise [Unknown]
  - Gastrointestinal disorder [Unknown]
  - Headache [Unknown]
  - Abdominal pain upper [Unknown]
  - Swelling [Unknown]
  - Hypersensitivity [Unknown]
